FAERS Safety Report 9175402 (Version 3)
Quarter: 2013Q3

REPORT INFORMATION
  Report Type: Report from Study
  Country: US (occurrence: US)
  Receive Date: 20130320
  Receipt Date: 20130819
  Transmission Date: 20140515
  Serious: Yes (Other)
  Sender: FDA-Public Use
  Company Number: US-ROCHE-1204116

PATIENT
  Age: 22 Year
  Sex: Female
  Weight: 57.6 kg

DRUGS (7)
  1. OMALIZUMAB [Suspect]
     Indication: ASTHMA
     Route: 058
     Dates: start: 20121108
  2. SALBUTAMOL [Concomitant]
     Route: 065
  3. MONTELUKAST [Concomitant]
     Route: 065
  4. PHYLLOCONTIN [Concomitant]
     Route: 065
  5. FERROUS SULPHATE [Concomitant]
     Route: 065
  6. CICLESONIDE [Concomitant]
     Route: 065
  7. CETRIZINE [Concomitant]

REACTIONS (1)
  - Vision blurred [Recovering/Resolving]
